FAERS Safety Report 4689296-9 (Version None)
Quarter: 2005Q2

REPORT INFORMATION
  Report Type: 
  Country: None (occurrence: None)
  Receive Date: 20050608
  Receipt Date: 20050323
  Transmission Date: 20051028
  Serious: No
  Sender: FDA-Public Use
  Company Number: 2005-BP-05019BP

PATIENT
  Sex: Female

DRUGS (9)
  1. SPIRIVA [Suspect]
     Indication: CHRONIC OBSTRUCTIVE PULMONARY DISEASE
     Dosage: 18 MCG (18 MCG, QD), IH
     Route: 055
     Dates: start: 20050214
  2. SPIRIVA [Suspect]
  3. NORVASC [Concomitant]
  4. ACCUPRIL [Concomitant]
  5. WELLBUTRIN [Concomitant]
  6. CLARITIN [Concomitant]
  7. ADVAIR DISKUS 100/50 [Concomitant]
  8. TEGRETOL [Concomitant]
  9. XANAX [Concomitant]

REACTIONS (1)
  - DRUG INEFFECTIVE [None]
